FAERS Safety Report 8771319 (Version 1)
Quarter: 2012Q4

REPORT INFORMATION
  Report Type: 
  Country: US (occurrence: US)
  Receive Date: 20120905
  Receipt Date: 20120905
  Transmission Date: 20130627
  Serious: No
  Sender: FDA-Public Use
  Company Number: US-ASTRAZENECA-2012SE57421

PATIENT
  Age: 63 Year
  Sex: Male

DRUGS (9)
  1. PRILOSEC [Suspect]
     Route: 048
  2. DEXILANT [Concomitant]
  3. VICODIN [Concomitant]
  4. CLONAZEPAM [Concomitant]
  5. IMITREX [Concomitant]
  6. LIPITOR [Concomitant]
  7. MORPHINE SULPHATE [Concomitant]
  8. TRAZODONE HCL [Concomitant]
  9. ZOLOFT [Concomitant]

REACTIONS (3)
  - Hiatus hernia [Unknown]
  - Abdominal pain upper [Unknown]
  - Drug dose omission [Unknown]
